FAERS Safety Report 4984213-6 (Version None)
Quarter: 2006Q2

REPORT INFORMATION
  Report Type: 
  Country: None (occurrence: None)
  Receive Date: 20060420
  Receipt Date: 20060411
  Transmission Date: 20061013
  Serious: Yes (Other)
  Sender: FDA-Public Use
  Company Number: 2006047017

PATIENT
  Age: 51 Year
  Sex: Female

DRUGS (3)
  1. EPELIN KAPSEALS (PHENYTOIN SODIUM) [Suspect]
     Indication: EPILEPSY
     Dosage: 200 MG (100 MG, 2 IN 1 D), ORAL
     Route: 048
     Dates: start: 19990101
  2. PHENYTOIN [Suspect]
     Indication: EPILEPSY
     Dates: start: 20051101
  3. HYDROCHLOROTHIAZIDE [Concomitant]

REACTIONS (2)
  - CONVULSION [None]
  - THERAPEUTIC RESPONSE UNEXPECTED WITH DRUG SUBSTITUTION [None]
